FAERS Safety Report 9288012 (Version 2)
Quarter: 2013Q2

REPORT INFORMATION
  Report Type: Spontaneous
  Country: US (occurrence: US)
  Receive Date: 20130514
  Receipt Date: 20130614
  Transmission Date: 20140414
  Serious: Yes (Hospitalization, Other)
  Sender: FDA-Public Use
  Company Number: US-ELI_LILLY_AND_COMPANY-US201305001953

PATIENT
  Age: 49 Year
  Sex: Male
  Weight: 116 kg

DRUGS (9)
  1. HUMULIN REGULAR [Suspect]
     Indication: DIABETES MELLITUS
     Dosage: 1.5 U, EVERY HOUR
     Route: 058
     Dates: start: 20120813
  2. OMEPRAZOL [Concomitant]
     Dosage: 40 MG, QD
  3. AMLODIPINE [Concomitant]
     Dosage: 5 MG, BID
  4. METOPROLOL [Concomitant]
     Dosage: 25 MG, QD
  5. METOCLOPRAMIDE [Concomitant]
     Dosage: 10 MG, BID
  6. LISINOPRIL [Concomitant]
     Dosage: 40 MG, QD
  7. ATORVASTATIN [Concomitant]
     Dosage: 40 MG, QD
  8. VALIUM                             /00017001/ [Concomitant]
     Indication: MUSCLE SPASMS
     Dosage: 5 MG, PRN
  9. PROZAC [Concomitant]
     Dosage: 10 MG, QD

REACTIONS (3)
  - Adenocarcinoma pancreas [Unknown]
  - Cholangiocarcinoma [Unknown]
  - Wrong technique in drug usage process [Not Recovered/Not Resolved]
